FAERS Safety Report 5408800-6 (Version None)
Quarter: 2007Q3

REPORT INFORMATION
  Report Type: 
  Country: None (occurrence: None)
  Receive Date: 20070808
  Receipt Date: 20070727
  Transmission Date: 20080115
  Serious: Yes (Other)
  Sender: FDA-Public Use
  Company Number: US-PFIZER INC-2007047711

PATIENT
  Sex: Female
  Weight: 95.3 kg

DRUGS (4)
  1. CHANTIX [Suspect]
     Indication: EX-SMOKER
     Route: 048
     Dates: start: 20070301, end: 20070518
  2. ACETYLSALICYLIC ACID SRT [Concomitant]
  3. PRAVASTATIN [Concomitant]
  4. OMEPRAZOLE [Concomitant]

REACTIONS (4)
  - FACIAL PALSY [None]
  - FEELING ABNORMAL [None]
  - LABYRINTHITIS [None]
  - STOMACH DISCOMFORT [None]
